FAERS Safety Report 5621190-9 (Version None)
Quarter: 2008Q1

REPORT INFORMATION
  Report Type: 
  Country: None (occurrence: None)
  Receive Date: 20080114
  Receipt Date: 20061209
  Transmission Date: 20080703
  Serious: Yes (Other)
  Sender: FDA-Public Use
  Company Number: A03200607413

PATIENT
  Age: 80 Year
  Sex: Female
  Weight: 81.6475 kg

DRUGS (17)
  1. PLAVIX [Suspect]
     Indication: STENT PLACEMENT
     Dosage: 75 MG QD - ORAL
     Route: 048
     Dates: start: 20040525, end: 20060109
  2. PLAVIX [Suspect]
     Indication: THROMBOSIS PROPHYLAXIS
     Dosage: 75 MG QD - ORAL
     Route: 048
     Dates: start: 20040525, end: 20060109
  3. ACETYLSALICYLIC ACID SRT [Concomitant]
  4. THYROID TAB [Concomitant]
  5. ESTROGENS CONJUGATED [Concomitant]
  6. FUROSEMIDE [Concomitant]
  7. SPIRONOLACTONE [Concomitant]
  8. METOLAZONE [Concomitant]
  9. ATORVASTATIN CALCIUM [Concomitant]
  10. POTASSIUM CHLORIDE [Concomitant]
  11. AMLODIPINE BESILATE [Concomitant]
  12. FLECAINIDE ACETATE [Concomitant]
  13. FEXOFENADINE HYDROCHLORIDE [Concomitant]
  14. LORATADINE [Concomitant]
  15. CALCIUM [Concomitant]
  16. CENTRUM [Concomitant]
  17. ATENOLOL [Concomitant]

REACTIONS (3)
  - CHEST PAIN [None]
  - DYSPNOEA [None]
  - EPISTAXIS [None]
